FAERS Safety Report 9717152 (Version 1)
Quarter: 2013Q4

REPORT INFORMATION
  Report Type: Spontaneous
  Country: US (occurrence: US)
  Receive Date: 20131127
  Receipt Date: 20131127
  Transmission Date: 20140711
  Serious: Yes (Other)
  Sender: FDA-Public Use
  Company Number: US-PFIZER INC-2013338315

PATIENT
  Age: 46 Year
  Sex: Female
  Weight: 63.04 kg

DRUGS (1)
  1. LYRICA [Suspect]
     Indication: FIBROMYALGIA
     Dosage: UNK
     Route: 048
     Dates: start: 199609, end: 2010

REACTIONS (10)
  - Weight increased [Recovered/Resolved]
  - Weight decreased [Unknown]
  - Back pain [Unknown]
  - Depression [Unknown]
  - Blood cholesterol increased [Unknown]
  - Sleep disorder [Unknown]
  - Memory impairment [Recovered/Resolved]
  - Tongue disorder [Recovered/Resolved]
  - Speech disorder [Recovered/Resolved]
  - Anxiety [Unknown]
